FAERS Safety Report 21864629 (Version 1)
Quarter: 2023Q1

REPORT INFORMATION
  Report Type: Report from Study
  Country: None (occurrence: ES)
  Receive Date: 20230116
  Receipt Date: 20230116
  Transmission Date: 20230418
  Serious: Yes (Other)
  Sender: FDA-Public Use
  Company Number: ES-AKCEA THERAPEUTICS, INC.-2023IS001010

PATIENT
  Age: 59 Year
  Sex: Female

DRUGS (2)
  1. TEGSEDI [Suspect]
     Active Substance: INOTERSEN SODIUM
     Indication: Hereditary neuropathic amyloidosis
     Route: 058
     Dates: start: 20220228
  2. DEVICE [Suspect]
     Active Substance: DEVICE

REACTIONS (2)
  - Intra-abdominal haematoma [Recovering/Resolving]
  - Mental disorder [Unknown]
